FAERS Safety Report 5272232-4 (Version None)
Quarter: 2007Q1

REPORT INFORMATION
  Report Type: 
  Country: None (occurrence: None)
  Receive Date: 20070320
  Receipt Date: 20070320
  Transmission Date: 20070707
  Serious: Yes (Hospitalization)
  Sender: FDA-Public Use
  Company Number: None

PATIENT
  Age: 62 Year
  Sex: Male
  Weight: 84.369 kg

DRUGS (2)
  1. IMATINIB 100 MG TAB [Suspect]
     Indication: PROSTATE CANCER METASTATIC
     Dosage: 200 MG PO DAILY
     Route: 048
     Dates: start: 20070206
  2. THALIDOMIDE 100 MG TAB [Suspect]
     Indication: PROSTATE CANCER METASTATIC
     Dosage: 100 MG PO DAILY
     Route: 048
     Dates: start: 20070206

REACTIONS (10)
  - BRONCHITIS [None]
  - CONDITION AGGRAVATED [None]
  - DECREASED APPETITE [None]
  - DYSARTHRIA [None]
  - FALL [None]
  - HEADACHE [None]
  - INTERVERTEBRAL DISC PROTRUSION [None]
  - LUMBAR RADICULOPATHY [None]
  - METASTASES TO SPINE [None]
  - MUSCULAR WEAKNESS [None]
